FAERS Safety Report 5503385-8 (Version None)
Quarter: 2007Q4

REPORT INFORMATION
  Report Type: 
  Country: None (occurrence: None)
  Receive Date: 20071031
  Receipt Date: 20071019
  Transmission Date: 20080405
  Serious: Yes (Hospitalization)
  Sender: FDA-Public Use
  Company Number: JP-PFIZER INC-2007088327

PATIENT
  Age: 18 Year
  Sex: Female

DRUGS (5)
  1. ZOLOFT [Suspect]
     Dosage: DAILY DOSE:100MG-TEXT:TDD:100MG
     Route: 048
     Dates: start: 20070526, end: 20071008
  2. DOGMATYL [Concomitant]
     Route: 048
  3. RIVOTRIL [Concomitant]
     Route: 048
  4. RESLIN [Concomitant]
     Route: 048
  5. LENDORMIN [Concomitant]
     Route: 048

REACTIONS (1)
  - LOSS OF CONSCIOUSNESS [None]
